FAERS Safety Report 7579922-9 (Version None)
Quarter: 2011Q2

REPORT INFORMATION
  Report Type: 
  Country: None (occurrence: None)
  Receive Date: 20110629
  Receipt Date: 20110615
  Transmission Date: 20111010
  Serious: Yes (Hospitalization, Other)
  Sender: FDA-Public Use
  Company Number: JP-CELGENEUS-087-21880-11020011

PATIENT
  Sex: Male
  Weight: 62.2 kg

DRUGS (20)
  1. DEXAMETHASONE [Suspect]
     Dosage: 40 MILLIGRAM
     Route: 048
     Dates: start: 20101217, end: 20101217
  2. SHAKUYAKU-KANZO-TO [Concomitant]
     Indication: PROPHYLAXIS
     Dosage: 2 GRAM
     Route: 048
     Dates: start: 20101210, end: 20101217
  3. REVLIMID [Suspect]
     Dosage: 10 MILLIGRAM
     Route: 048
     Dates: start: 20110125, end: 20110203
  4. LANSOPRAZOLE [Concomitant]
     Indication: PROPHYLAXIS
     Dosage: 15 MILLIGRAM
     Route: 048
     Dates: start: 20101209
  5. URINORM [Concomitant]
     Dosage: 50 MILLIGRAM
     Route: 048
     Dates: start: 20101216, end: 20110103
  6. DAIPHEN [Concomitant]
     Indication: PROPHYLAXIS
     Dosage: 1 TABLET
     Route: 048
     Dates: start: 20101220, end: 20101226
  7. SELTOUCH [Concomitant]
     Indication: MULTIPLE MYELOMA
     Route: 062
     Dates: start: 20101228
  8. PLETAL [Concomitant]
     Dosage: 200 MILLIGRAM
     Route: 048
     Dates: start: 20101209
  9. ALLOZYM [Concomitant]
     Dosage: 200 MILLIGRAM
     Route: 048
     Dates: start: 20101209, end: 20101215
  10. SLOW-K [Concomitant]
     Indication: PROPHYLAXIS
     Dosage: 600 MILLIGRAM
     Route: 048
     Dates: start: 20101209
  11. REVLIMID [Suspect]
     Dosage: 10 MILLIGRAM
     Route: 048
     Dates: start: 20110104, end: 20110113
  12. TRICHLORMETHIAZIDE [Concomitant]
     Dosage: 2 MILLIGRAM
     Route: 048
     Dates: start: 20101209
  13. DEXAMETHASONE [Suspect]
     Indication: MULTIPLE MYELOMA
     Dosage: 40 MILLIGRAM
     Route: 048
     Dates: start: 20101209, end: 20101212
  14. BERBERON [Concomitant]
     Route: 048
     Dates: start: 20101209
  15. REBAMIPIDE [Concomitant]
     Indication: PROPHYLAXIS
     Dosage: 300 MILLIGRAM
     Route: 048
     Dates: start: 20101209
  16. PRIMPERAN TAB [Concomitant]
     Indication: PROPHYLAXIS
     Dosage: 15 GRAM
     Route: 048
     Dates: start: 20101210, end: 20101217
  17. REVLIMID [Suspect]
     Indication: MULTIPLE MYELOMA
     Dosage: 10 MILLIGRAM
     Route: 048
     Dates: start: 20101209, end: 20101229
  18. LASIX [Concomitant]
     Dosage: 40 MILLIGRAM
     Route: 048
     Dates: start: 20101209
  19. FLUNASE [Concomitant]
     Route: 045
     Dates: start: 20101209
  20. HIRUDOID [Concomitant]
     Route: 062
     Dates: start: 20101211

REACTIONS (3)
  - THROMBOCYTOPENIA [None]
  - DELIRIUM [None]
  - CARDIAC FAILURE [None]
